FAERS Safety Report 13369405 (Version 1)
Quarter: 2017Q1

REPORT INFORMATION
  Report Type: Spontaneous
  Country: US (occurrence: US)
  Receive Date: 20170324
  Receipt Date: 20170324
  Transmission Date: 20170429
  Serious: Yes (Disabling)
  Sender: FDA-Public Use
  Company Number: None

PATIENT
  Age: 31 Year
  Sex: Female
  Weight: 56.25 kg

DRUGS (4)
  1. LEVOFLOAXCIN [Suspect]
     Active Substance: LEVOFLOXACIN
     Indication: INFECTION PROPHYLAXIS
     Route: 042
     Dates: start: 20170309, end: 20170309
  2. LEVOFLOAXCIN [Suspect]
     Active Substance: LEVOFLOXACIN
     Indication: HERNIA REPAIR
     Route: 042
     Dates: start: 20170309, end: 20170309
  3. GARDEN OF LIFE RAW ORGANIC PRENATAL VITAMINS [Concomitant]
  4. ULTIMATE FLORA 15 BILLION PROBIOTICS [Concomitant]

REACTIONS (7)
  - Dyspnoea [None]
  - Arthropathy [None]
  - Migraine [None]
  - Musculoskeletal stiffness [None]
  - Anxiety [None]
  - Hypoaesthesia [None]
  - Pain in extremity [None]

NARRATIVE: CASE EVENT DATE: 20170309
